FAERS Safety Report 8449832-3 (Version None)
Quarter: 2012Q2

REPORT INFORMATION
  Report Type: 
  Country: None (occurrence: None)
  Receive Date: 20120620
  Receipt Date: 20120607
  Transmission Date: 20120825
  Serious: Yes (Hospitalization, Disabling, Other)
  Sender: FDA-Public Use
  Company Number: US-ELI_LILLY_AND_COMPANY-US201206002949

PATIENT
  Sex: Female

DRUGS (13)
  1. PROAIR HFA [Concomitant]
  2. CYMBALTA [Suspect]
     Indication: DEPRESSION
     Dosage: 30 MG, UNK
  3. CYMBALTA [Suspect]
     Dosage: 60 MG, UNK
  4. VICODIN [Concomitant]
  5. ESTRATEST [Concomitant]
  6. XANAX [Concomitant]
  7. SOMA [Concomitant]
  8. LISINOPRIL [Concomitant]
  9. PLAQUENIL [Concomitant]
  10. IMITREX [Concomitant]
  11. CYMBALTA [Suspect]
     Dosage: 120 MG, QD
     Dates: end: 20120101
  12. ALBUTEROL [Concomitant]
  13. LEVOTHYROXINE SODIUM [Concomitant]

REACTIONS (13)
  - BLOOD PRESSURE INCREASED [None]
  - MOVEMENT DISORDER [None]
  - PAIN [None]
  - RAYNAUD'S PHENOMENON [None]
  - SUICIDAL IDEATION [None]
  - ANXIETY [None]
  - DEPRESSION [None]
  - CONVULSION [None]
  - DISABILITY [None]
  - MUSCULAR WEAKNESS [None]
  - VISUAL ACUITY REDUCED [None]
  - NEUROPATHY PERIPHERAL [None]
  - PANIC ATTACK [None]
